FAERS Safety Report 5958180-2 (Version None)
Quarter: 2008Q4

REPORT INFORMATION
  Report Type: 
  Country: None (occurrence: None)
  Receive Date: 20081117
  Receipt Date: 20081117
  Transmission Date: 20090506
  Serious: Yes (Hospitalization)
  Sender: FDA-Public Use
  Company Number: None

PATIENT
  Sex: Female

DRUGS (2)
  1. LEVOFLOXACIN [Suspect]
     Indication: CULTURE WOUND
     Dosage: 500MG Q 48 HOURS PO
     Route: 048
     Dates: start: 20081006, end: 20081012
  2. LEVOFLOXACIN [Suspect]
     Indication: ENTEROBACTER INFECTION
     Dosage: 500MG Q 48 HOURS PO
     Route: 048
     Dates: start: 20081006, end: 20081012

REACTIONS (9)
  - ABSCESS [None]
  - BLOOD CREATININE INCREASED [None]
  - BLOOD UREA INCREASED [None]
  - C-REACTIVE PROTEIN INCREASED [None]
  - CELLULITIS [None]
  - CONDITION AGGRAVATED [None]
  - CONFUSIONAL STATE [None]
  - HALLUCINATION [None]
  - INFECTION [None]
